FAERS Safety Report 6207497-5 (Version None)
Quarter: 2009Q2

REPORT INFORMATION
  Report Type: 
  Country: None (occurrence: None)
  Receive Date: 20090528
  Receipt Date: 20090518
  Transmission Date: 20091009
  Serious: Yes (Other)
  Sender: FDA-Public Use
  Company Number: GB-PFIZER INC-2009205754

PATIENT
  Age: 24 Year

DRUGS (1)
  1. DEPO-PROVERA [Suspect]
     Dosage: UNK
     Route: 030
     Dates: start: 20090429

REACTIONS (7)
  - BLOOD PRESSURE DECREASED [None]
  - DIZZINESS [None]
  - HYPERSENSITIVITY [None]
  - MALAISE [None]
  - OEDEMA PERIPHERAL [None]
  - TREMOR [None]
  - URTICARIA [None]
